FAERS Safety Report 5494460-5 (Version None)
Quarter: 2007Q4

REPORT INFORMATION
  Report Type: 
  Country: None (occurrence: None)
  Receive Date: 20071022
  Receipt Date: 20071022
  Transmission Date: 20080405
  Serious: No
  Sender: FDA-Public Use
  Company Number: None

PATIENT
  Sex: Male

DRUGS (3)
  1. MORPHINE SULFATE [Suspect]
     Indication: MUSCULOSKELETAL PAIN
     Dosage: 3 TABLETS 3 TIMES A DAY ORAL
     Route: 048
     Dates: start: 20070905, end: 20071005
  2. DEPAKOTE ER [Concomitant]
  3. M.V.I. [Concomitant]

REACTIONS (3)
  - DRUG EFFECT DECREASED [None]
  - INADEQUATE ANALGESIA [None]
  - PHARMACEUTICAL PRODUCT COMPLAINT [None]
